FAERS Safety Report 16200096 (Version 1)
Quarter: 2019Q2

REPORT INFORMATION
  Report Type: Spontaneous
  Country: US (occurrence: US)
  Receive Date: 20190415
  Receipt Date: 20190415
  Transmission Date: 20190711
  Serious: No
  Sender: FDA-Public Use
  Company Number: US-009507513-1904USA003800

PATIENT
  Age: 42 Year
  Sex: Male

DRUGS (4)
  1. AMIKACIN. [Suspect]
     Active Substance: AMIKACIN
     Indication: NOCARDIOSIS
     Dosage: UNK
     Route: 042
  2. SULFAMETHOXAZOLE (+) TRIMETHOPRIM [Suspect]
     Active Substance: SULFAMETHOXAZOLE\TRIMETHOPRIM
     Indication: NOCARDIOSIS
     Dosage: UNK
  3. PRIMAXIN IV [Suspect]
     Active Substance: CILASTATIN SODIUM\IMIPENEM
     Indication: NOCARDIOSIS
     Dosage: UNK
     Route: 042
  4. PRIMAXIN IV [Suspect]
     Active Substance: CILASTATIN SODIUM\IMIPENEM
     Dosage: UNK
     Route: 042

REACTIONS (1)
  - Treatment noncompliance [Unknown]
